FAERS Safety Report 5232529-0 (Version None)
Quarter: 2007Q1

REPORT INFORMATION
  Report Type: 
  Country: None (occurrence: None)
  Receive Date: 20070207
  Receipt Date: 20070205
  Transmission Date: 20070707
  Serious: Yes (Other)
  Sender: FDA-Public Use
  Company Number: US-GLAXOSMITHKLINE-A0638424A

PATIENT
  Age: 29 Year
  Sex: Female

DRUGS (3)
  1. AZT [Suspect]
     Dosage: 600MG PER DAY
     Route: 048
     Dates: start: 20051201
  2. KALETRA [Concomitant]
     Dosage: 1000MG PER DAY
     Route: 048
     Dates: start: 20051201
  3. TRUVADA [Concomitant]
     Dosage: 500MG PER DAY
     Route: 048
     Dates: start: 20051201

REACTIONS (1)
  - ABORTION SPONTANEOUS [None]
